FAERS Safety Report 21597729 (Version 1)
Quarter: 2022Q4

REPORT INFORMATION
  Report Type: Spontaneous
  Country: US (occurrence: None)
  Receive Date: 20221114
  Receipt Date: 20221114
  Transmission Date: 20230113
  Serious: No
  Sender: FDA-Public Use
  Company Number: None

PATIENT

DRUGS (2)
  1. ALENDRONATE SODIUM [Suspect]
     Active Substance: ALENDRONATE SODIUM
     Route: 048
  2. ALENDRONATE SODIUM [Suspect]
     Active Substance: ALENDRONATE SODIUM

REACTIONS (7)
  - Transcription medication error [None]
  - Product selection error [None]
  - Wrong product administered [None]
  - Device computer issue [None]
  - Product label issue [None]
  - Product label issue [None]
  - Product design issue [None]
